FAERS Safety Report 25247296 (Version 8)
Quarter: 2025Q4

REPORT INFORMATION
  Report Type: Spontaneous
  Country: EU (occurrence: EU)
  Receive Date: 20250428
  Receipt Date: 20251120
  Transmission Date: 20260117
  Serious: Yes (Hospitalization, Disabling, Other)
  Sender: MYLAN
  Company Number: EU-LESVI-2025001568

PATIENT
  Age: 86 Year
  Sex: Female

DRUGS (92)
  1. CITALOPRAM [Suspect]
     Active Substance: CITALOPRAM
     Indication: Product used for unknown indication
     Dosage: 40 MILLIGRAM, QD (FIRST 40MG, REDUCED TO 20 MG)
  2. CITALOPRAM [Suspect]
     Active Substance: CITALOPRAM
     Dosage: 40 MILLIGRAM, QD (FIRST 40MG, REDUCED TO 20 MG)
  3. CITALOPRAM [Suspect]
     Active Substance: CITALOPRAM
     Dosage: 40 MILLIGRAM, QD (FIRST 40MG, REDUCED TO 20 MG)
     Route: 065
  4. CITALOPRAM [Suspect]
     Active Substance: CITALOPRAM
     Dosage: 40 MILLIGRAM, QD (FIRST 40MG, REDUCED TO 20 MG)
     Route: 065
  5. CITALOPRAM [Suspect]
     Active Substance: CITALOPRAM
     Dosage: 20 MILLIGRAM, QD (DOSE REDUCED FROM 40 MG TO 20 MG )
  6. CITALOPRAM [Suspect]
     Active Substance: CITALOPRAM
     Dosage: 20 MILLIGRAM, QD (DOSE REDUCED FROM 40 MG TO 20 MG )
  7. CITALOPRAM [Suspect]
     Active Substance: CITALOPRAM
     Dosage: 20 MILLIGRAM, QD (DOSE REDUCED FROM 40 MG TO 20 MG )
     Route: 065
  8. CITALOPRAM [Suspect]
     Active Substance: CITALOPRAM
     Dosage: 20 MILLIGRAM, QD (DOSE REDUCED FROM 40 MG TO 20 MG )
     Route: 065
  9. METOPROLOL [Suspect]
     Active Substance: METOPROLOL
     Indication: Blood pressure measurement
     Dosage: UNK (DOSE REDUCED FROM 40 MG TO 20 MG)
     Route: 065
  10. METOPROLOL [Suspect]
     Active Substance: METOPROLOL
     Dosage: UNK (DOSE REDUCED FROM 40 MG TO 20 MG)
  11. METOPROLOL [Suspect]
     Active Substance: METOPROLOL
     Dosage: UNK (DOSE REDUCED FROM 40 MG TO 20 MG)
  12. METOPROLOL [Suspect]
     Active Substance: METOPROLOL
     Dosage: UNK (DOSE REDUCED FROM 40 MG TO 20 MG)
     Route: 065
  13. METOPROLOL [Suspect]
     Active Substance: METOPROLOL
     Dosage: 40 MILLIGRAM
     Route: 065
  14. METOPROLOL [Suspect]
     Active Substance: METOPROLOL
     Dosage: 40 MILLIGRAM
  15. METOPROLOL [Suspect]
     Active Substance: METOPROLOL
     Dosage: 40 MILLIGRAM
  16. METOPROLOL [Suspect]
     Active Substance: METOPROLOL
     Dosage: 40 MILLIGRAM
     Route: 065
  17. METOPROLOL [Suspect]
     Active Substance: METOPROLOL
     Dosage: UNK UNK, QD
     Route: 065
  18. METOPROLOL [Suspect]
     Active Substance: METOPROLOL
     Dosage: UNK UNK, QD
     Route: 065
  19. METOPROLOL [Suspect]
     Active Substance: METOPROLOL
     Dosage: UNK UNK, QD
  20. METOPROLOL [Suspect]
     Active Substance: METOPROLOL
     Dosage: UNK UNK, QD
  21. TORSEMIDE [Suspect]
     Active Substance: TORSEMIDE
     Indication: Blood pressure measurement
     Dosage: UNK
  22. TORSEMIDE [Suspect]
     Active Substance: TORSEMIDE
     Dosage: UNK
     Route: 065
  23. TORSEMIDE [Suspect]
     Active Substance: TORSEMIDE
     Dosage: UNK
     Route: 065
  24. TORSEMIDE [Suspect]
     Active Substance: TORSEMIDE
     Dosage: UNK
  25. NALOXONE HYDROCHLORIDE\TILIDINE HYDROCHLORIDE [Suspect]
     Active Substance: NALOXONE HYDROCHLORIDE\TILIDINE HYDROCHLORIDE
     Indication: Product used for unknown indication
     Dosage: UNK
  26. NALOXONE HYDROCHLORIDE\TILIDINE HYDROCHLORIDE [Suspect]
     Active Substance: NALOXONE HYDROCHLORIDE\TILIDINE HYDROCHLORIDE
     Dosage: UNK
     Route: 065
  27. NALOXONE HYDROCHLORIDE\TILIDINE HYDROCHLORIDE [Suspect]
     Active Substance: NALOXONE HYDROCHLORIDE\TILIDINE HYDROCHLORIDE
     Dosage: UNK
     Route: 065
  28. NALOXONE HYDROCHLORIDE\TILIDINE HYDROCHLORIDE [Suspect]
     Active Substance: NALOXONE HYDROCHLORIDE\TILIDINE HYDROCHLORIDE
     Dosage: UNK
  29. SIMVASTATIN [Suspect]
     Active Substance: SIMVASTATIN
     Indication: Product used for unknown indication
     Dosage: UNK
  30. SIMVASTATIN [Suspect]
     Active Substance: SIMVASTATIN
     Dosage: UNK
     Route: 065
  31. SIMVASTATIN [Suspect]
     Active Substance: SIMVASTATIN
     Dosage: UNK
     Route: 065
  32. SIMVASTATIN [Suspect]
     Active Substance: SIMVASTATIN
     Dosage: UNK
  33. PANTOPRAZOLE [Suspect]
     Active Substance: PANTOPRAZOLE
     Indication: Product used for unknown indication
     Dosage: 40 MILLIGRAM, QD (DOSE REDUCED FROM 40 MG TO 20 MG)
  34. PANTOPRAZOLE [Suspect]
     Active Substance: PANTOPRAZOLE
     Dosage: 40 MILLIGRAM, QD (DOSE REDUCED FROM 40 MG TO 20 MG)
  35. PANTOPRAZOLE [Suspect]
     Active Substance: PANTOPRAZOLE
     Dosage: 40 MILLIGRAM, QD (DOSE REDUCED FROM 40 MG TO 20 MG)
     Route: 065
  36. PANTOPRAZOLE [Suspect]
     Active Substance: PANTOPRAZOLE
     Dosage: 40 MILLIGRAM, QD (DOSE REDUCED FROM 40 MG TO 20 MG)
     Route: 065
  37. PANTOPRAZOLE [Suspect]
     Active Substance: PANTOPRAZOLE
     Dosage: 20 MILLIGRAM, QD (DOSE REDUCED FROM 40 MG TO 20 MG)
  38. PANTOPRAZOLE [Suspect]
     Active Substance: PANTOPRAZOLE
     Dosage: 20 MILLIGRAM, QD (DOSE REDUCED FROM 40 MG TO 20 MG)
  39. PANTOPRAZOLE [Suspect]
     Active Substance: PANTOPRAZOLE
     Dosage: 20 MILLIGRAM, QD (DOSE REDUCED FROM 40 MG TO 20 MG)
     Route: 065
  40. PANTOPRAZOLE [Suspect]
     Active Substance: PANTOPRAZOLE
     Dosage: 20 MILLIGRAM, QD (DOSE REDUCED FROM 40 MG TO 20 MG)
     Route: 065
  41. METFORMIN [Suspect]
     Active Substance: METFORMIN HYDROCHLORIDE
     Indication: Product used for unknown indication
     Dosage: 850 MILLIGRAM (FIRST TWICE 850 MG, REDUCED TO TWICE 500 MG)
  42. METFORMIN [Suspect]
     Active Substance: METFORMIN HYDROCHLORIDE
     Dosage: 850 MILLIGRAM (FIRST TWICE 850 MG, REDUCED TO TWICE 500 MG)
  43. METFORMIN [Suspect]
     Active Substance: METFORMIN HYDROCHLORIDE
     Dosage: 850 MILLIGRAM (FIRST TWICE 850 MG, REDUCED TO TWICE 500 MG)
     Route: 065
  44. METFORMIN [Suspect]
     Active Substance: METFORMIN HYDROCHLORIDE
     Dosage: 850 MILLIGRAM (FIRST TWICE 850 MG, REDUCED TO TWICE 500 MG)
     Route: 065
  45. METFORMIN [Suspect]
     Active Substance: METFORMIN HYDROCHLORIDE
     Dosage: 500 MILLIGRAM, BID (FIRST TWICE 850 MG, REDUCED TO TWICE 500 MG)
  46. METFORMIN [Suspect]
     Active Substance: METFORMIN HYDROCHLORIDE
     Dosage: 500 MILLIGRAM, BID (FIRST TWICE 850 MG, REDUCED TO TWICE 500 MG)
  47. METFORMIN [Suspect]
     Active Substance: METFORMIN HYDROCHLORIDE
     Dosage: 500 MILLIGRAM, BID (FIRST TWICE 850 MG, REDUCED TO TWICE 500 MG)
     Route: 065
  48. METFORMIN [Suspect]
     Active Substance: METFORMIN HYDROCHLORIDE
     Dosage: 500 MILLIGRAM, BID (FIRST TWICE 850 MG, REDUCED TO TWICE 500 MG)
     Route: 065
  49. SITAGLIPTIN [Suspect]
     Active Substance: SITAGLIPTIN
     Indication: Product used for unknown indication
     Dosage: 850 MILLIGRAM (FIRST TWICE 850 MG, REDUCED TO TWICE 500 MG)
  50. SITAGLIPTIN [Suspect]
     Active Substance: SITAGLIPTIN
     Dosage: 850 MILLIGRAM (FIRST TWICE 850 MG, REDUCED TO TWICE 500 MG)
     Route: 065
  51. SITAGLIPTIN [Suspect]
     Active Substance: SITAGLIPTIN
     Dosage: 850 MILLIGRAM (FIRST TWICE 850 MG, REDUCED TO TWICE 500 MG)
     Route: 065
  52. SITAGLIPTIN [Suspect]
     Active Substance: SITAGLIPTIN
     Dosage: 850 MILLIGRAM (FIRST TWICE 850 MG, REDUCED TO TWICE 500 MG)
  53. SITAGLIPTIN [Suspect]
     Active Substance: SITAGLIPTIN
     Dosage: 50 MILLIGRAM, BID (FIRST TWICE 850 MG, REDUCED TO TWICE 500 MG
  54. SITAGLIPTIN [Suspect]
     Active Substance: SITAGLIPTIN
     Dosage: 50 MILLIGRAM, BID (FIRST TWICE 850 MG, REDUCED TO TWICE 500 MG
     Route: 065
  55. SITAGLIPTIN [Suspect]
     Active Substance: SITAGLIPTIN
     Dosage: 50 MILLIGRAM, BID (FIRST TWICE 850 MG, REDUCED TO TWICE 500 MG
  56. SITAGLIPTIN [Suspect]
     Active Substance: SITAGLIPTIN
     Dosage: 50 MILLIGRAM, BID (FIRST TWICE 850 MG, REDUCED TO TWICE 500 MG
     Route: 065
  57. SITAGLIPTIN [Suspect]
     Active Substance: SITAGLIPTIN
     Dosage: 50 MILLIGRAM, QD (DOSE REDUCED FROM BID 50 MG TO 50 MG ONCE DAILY)
     Route: 065
  58. SITAGLIPTIN [Suspect]
     Active Substance: SITAGLIPTIN
     Dosage: 50 MILLIGRAM, QD (DOSE REDUCED FROM BID 50 MG TO 50 MG ONCE DAILY)
     Route: 065
  59. SITAGLIPTIN [Suspect]
     Active Substance: SITAGLIPTIN
     Dosage: 50 MILLIGRAM, QD (DOSE REDUCED FROM BID 50 MG TO 50 MG ONCE DAILY)
  60. SITAGLIPTIN [Suspect]
     Active Substance: SITAGLIPTIN
     Dosage: 50 MILLIGRAM, QD (DOSE REDUCED FROM BID 50 MG TO 50 MG ONCE DAILY)
  61. HYDROCHLOROTHIAZIDE\RAMIPRIL [Suspect]
     Active Substance: HYDROCHLOROTHIAZIDE\RAMIPRIL
     Indication: Blood pressure measurement
     Dosage: 50 MILLIGRAM, QD
  62. HYDROCHLOROTHIAZIDE\RAMIPRIL [Suspect]
     Active Substance: HYDROCHLOROTHIAZIDE\RAMIPRIL
     Dosage: 50 MILLIGRAM, QD
     Route: 065
  63. HYDROCHLOROTHIAZIDE\RAMIPRIL [Suspect]
     Active Substance: HYDROCHLOROTHIAZIDE\RAMIPRIL
     Dosage: 50 MILLIGRAM, QD
     Route: 065
  64. HYDROCHLOROTHIAZIDE\RAMIPRIL [Suspect]
     Active Substance: HYDROCHLOROTHIAZIDE\RAMIPRIL
     Dosage: 50 MILLIGRAM, QD
  65. PROMETHAZINE [Suspect]
     Active Substance: PROMETHAZINE HYDROCHLORIDE
     Indication: Product used for unknown indication
     Dosage: UNK
  66. PROMETHAZINE [Suspect]
     Active Substance: PROMETHAZINE HYDROCHLORIDE
     Dosage: UNK
     Route: 065
  67. PROMETHAZINE [Suspect]
     Active Substance: PROMETHAZINE HYDROCHLORIDE
     Dosage: UNK
     Route: 065
  68. PROMETHAZINE [Suspect]
     Active Substance: PROMETHAZINE HYDROCHLORIDE
     Dosage: UNK
  69. CINNARIZINE\DIMENHYDRINATE [Suspect]
     Active Substance: CINNARIZINE\DIMENHYDRINATE
     Indication: Dizziness
     Dosage: UNK
  70. CINNARIZINE\DIMENHYDRINATE [Suspect]
     Active Substance: CINNARIZINE\DIMENHYDRINATE
     Dosage: UNK
     Route: 065
  71. CINNARIZINE\DIMENHYDRINATE [Suspect]
     Active Substance: CINNARIZINE\DIMENHYDRINATE
     Dosage: UNK
     Route: 065
  72. CINNARIZINE\DIMENHYDRINATE [Suspect]
     Active Substance: CINNARIZINE\DIMENHYDRINATE
     Dosage: UNK
  73. BISOPROLOL [Concomitant]
     Active Substance: BISOPROLOL
     Indication: Hypertension
     Dosage: UNK
  74. BISOPROLOL [Concomitant]
     Active Substance: BISOPROLOL
     Dosage: UNK
     Route: 065
  75. BISOPROLOL [Concomitant]
     Active Substance: BISOPROLOL
     Dosage: UNK
     Route: 065
  76. BISOPROLOL [Concomitant]
     Active Substance: BISOPROLOL
     Dosage: UNK
  77. HYDROCHLOROTHIAZIDE [Concomitant]
     Active Substance: HYDROCHLOROTHIAZIDE
     Indication: Hypertension
     Dosage: 50 MILLIGRAM, QD
  78. HYDROCHLOROTHIAZIDE [Concomitant]
     Active Substance: HYDROCHLOROTHIAZIDE
     Dosage: 50 MILLIGRAM, QD
     Route: 065
  79. HYDROCHLOROTHIAZIDE [Concomitant]
     Active Substance: HYDROCHLOROTHIAZIDE
     Dosage: 50 MILLIGRAM, QD
     Route: 065
  80. HYDROCHLOROTHIAZIDE [Concomitant]
     Active Substance: HYDROCHLOROTHIAZIDE
     Dosage: 50 MILLIGRAM, QD
  81. ALLOPURINOL [Concomitant]
     Active Substance: ALLOPURINOL
     Indication: Product used for unknown indication
     Dosage: UNK
  82. ALLOPURINOL [Concomitant]
     Active Substance: ALLOPURINOL
     Dosage: UNK
     Route: 065
  83. ALLOPURINOL [Concomitant]
     Active Substance: ALLOPURINOL
     Dosage: UNK
     Route: 065
  84. ALLOPURINOL [Concomitant]
     Active Substance: ALLOPURINOL
     Dosage: UNK
  85. PROPIVERINE [Concomitant]
     Active Substance: PROPIVERINE
     Indication: Product used for unknown indication
     Dosage: UNK
  86. PROPIVERINE [Concomitant]
     Active Substance: PROPIVERINE
     Dosage: UNK
     Route: 065
  87. PROPIVERINE [Concomitant]
     Active Substance: PROPIVERINE
     Dosage: UNK
     Route: 065
  88. PROPIVERINE [Concomitant]
     Active Substance: PROPIVERINE
     Dosage: UNK
  89. Schwedentabletten [Concomitant]
     Indication: Product used for unknown indication
     Dosage: UNK
  90. Schwedentabletten [Concomitant]
     Dosage: UNK
     Route: 065
  91. Schwedentabletten [Concomitant]
     Dosage: UNK
     Route: 065
  92. Schwedentabletten [Concomitant]
     Dosage: UNK

REACTIONS (19)
  - Renal impairment [Unknown]
  - Craniofacial fracture [Recovered/Resolved]
  - Fall [Recovered/Resolved]
  - Mobility decreased [Recovered/Resolved]
  - Contusion [Recovered/Resolved]
  - Immobile [Unknown]
  - Lethargy [Recovered/Resolved]
  - Hyponatraemia [Recovered/Resolved]
  - Inappropriate antidiuretic hormone secretion [Unknown]
  - Medication error [Recovered/Resolved]
  - Dysphagia [Recovered/Resolved]
  - Fear of falling [Unknown]
  - Fatigue [Recovered/Resolved]
  - Constipation [Recovered/Resolved]
  - Dizziness [Recovered/Resolved]
  - Blood pressure decreased [Unknown]
  - Prescribed overdose [Recovered/Resolved]
  - Wrong dose [Unknown]
  - Incorrect dose administered [Unknown]
